FAERS Safety Report 16830675 (Version 3)
Quarter: 2019Q4

REPORT INFORMATION
  Report Type: Report from Study
  Country: US (occurrence: US)
  Receive Date: 20190920
  Receipt Date: 20191017
  Transmission Date: 20200122
  Serious: Yes (Hospitalization, Other)
  Sender: FDA-Public Use
  Company Number: US-GILEAD-2019-0429060

PATIENT
  Age: 38 Year
  Sex: Female
  Weight: 67.3 kg

DRUGS (21)
  1. ALBUTEROL [SALBUTAMOL] [Concomitant]
     Active Substance: ALBUTEROL
  2. NEXIUM [Concomitant]
     Active Substance: ESOMEPRAZOLE MAGNESIUM
  3. MIRALAX [Concomitant]
     Active Substance: POLYETHYLENE GLYCOL 3350
  4. FIRVANQ [Concomitant]
     Active Substance: VANCOMYCIN HYDROCHLORIDE
  5. ULTRAM [Concomitant]
     Active Substance: TRAMADOL HYDROCHLORIDE
  6. SILDENAFIL. [Concomitant]
     Active Substance: SILDENAFIL
  7. OXYCODONE [Concomitant]
     Active Substance: OXYCODONE
  8. LISINOPRIL. [Concomitant]
     Active Substance: LISINOPRIL
  9. FLONASE [Concomitant]
     Active Substance: FLUTICASONE PROPIONATE
  10. REVITATROL [Concomitant]
  11. NEURONTIN [Concomitant]
     Active Substance: GABAPENTIN
  12. BUMEX [Concomitant]
     Active Substance: BUMETANIDE
  13. ALDACTONE [Concomitant]
     Active Substance: SPIRONOLACTONE
  14. KLOR-CON [Concomitant]
     Active Substance: POTASSIUM CHLORIDE
  15. OXY [SALICYLIC ACID] [Concomitant]
  16. COREG [Concomitant]
     Active Substance: CARVEDILOL
  17. VALIUM [Concomitant]
     Active Substance: DIAZEPAM
  18. CARVEDILOL. [Concomitant]
     Active Substance: CARVEDILOL
  19. AZTREONAM LYSINE [Suspect]
     Active Substance: AZTREONAM LYSINE
     Indication: PSEUDOMONAS INFECTION
     Dosage: 75 MG, TID, QOM
     Route: 055
     Dates: start: 201103
  20. FERROUS SULFATE. [Concomitant]
     Active Substance: FERROUS SULFATE
  21. ASTELIN [DIPROPHYLLINE] [Concomitant]

REACTIONS (2)
  - Pneumonia [Recovered/Resolved]
  - Off label use [Not Recovered/Not Resolved]

NARRATIVE: CASE EVENT DATE: 201103
